FAERS Safety Report 6023170-0 (Version None)
Quarter: 2008Q4

REPORT INFORMATION
  Report Type: 
  Country: None (occurrence: None)
  Receive Date: 20081230
  Receipt Date: 20081229
  Transmission Date: 20090506
  Serious: Yes (Other)
  Sender: FDA-Public Use
  Company Number: B0551955A

PATIENT
  Age: 45 Year
  Sex: Female

DRUGS (3)
  1. PAXIL [Suspect]
     Indication: PANIC ATTACK
     Dosage: 20MG PER DAY
     Route: 048
     Dates: start: 20081104, end: 20081210
  2. VITAMEDIN [Concomitant]
     Dosage: 3 PER DAY
     Route: 048
     Dates: start: 20081104
  3. ASCORBIC ACID [Concomitant]
     Dosage: 66.6MG THREE TIMES PER DAY
     Route: 048
     Dates: start: 20081104

REACTIONS (7)
  - AGRANULOCYTOSIS [None]
  - LYMPH NODE PAIN [None]
  - LYMPHOCYTE COUNT INCREASED [None]
  - MONOCYTE COUNT INCREASED [None]
  - NEUTROPHIL COUNT DECREASED [None]
  - PLATELET COUNT INCREASED [None]
  - PYREXIA [None]
